FAERS Safety Report 9914746 (Version 1)
Quarter: 2014Q1

REPORT INFORMATION
  Report Type: Spontaneous
  Country: KR (occurrence: KR)
  Receive Date: 20140220
  Receipt Date: 20140220
  Transmission Date: 20141002
  Serious: Yes (Hospitalization)
  Sender: FDA-Public Use
  Company Number: PHHY2014KR020689

PATIENT
  Age: 66 Year
  Sex: Female

DRUGS (4)
  1. CARBAMAZEPINE [Suspect]
     Indication: NEUROPATHY PERIPHERAL
     Dosage: 200 MG, PER DAY (FOR 03 DAYS)
  2. CEPHALOSPORINES [Concomitant]
  3. IMIDAZOLE [Concomitant]
  4. QUINOLONES [Concomitant]

REACTIONS (2)
  - Bronchitis [Unknown]
  - Skin reaction [Unknown]
